FAERS Safety Report 8615936-5 (Version None)
Quarter: 2012Q3

REPORT INFORMATION
  Report Type: 
  Country: None (occurrence: None)
  Receive Date: 20120823
  Receipt Date: 20120813
  Transmission Date: 20120928
  Serious: Yes (Hospitalization)
  Sender: FDA-Public Use
  Company Number: FR-GLAXOSMITHKLINE-B0822242A

PATIENT
  Sex: Male
  Weight: 2.4 kg

DRUGS (1)
  1. CLAVULANATE POTASSIUM [Suspect]
     Indication: ANTIBIOTIC PROPHYLAXIS
     Route: 065
     Dates: start: 20120708, end: 20120709

REACTIONS (5)
  - RENAL FAILURE [None]
  - ACIDOSIS HYPERCHLORAEMIC [None]
  - TUBULOINTERSTITIAL NEPHRITIS [None]
  - ANURIA [None]
  - GRAVITATIONAL OEDEMA [None]
